FAERS Safety Report 7921654-9 (Version None)
Quarter: 2011Q4

REPORT INFORMATION
  Report Type: 
  Country: None (occurrence: None)
  Receive Date: 20111117
  Receipt Date: 20111111
  Transmission Date: 20120403
  Serious: Yes (Death)
  Sender: FDA-Public Use
  Company Number: US-PFIZER INC-2011064357

PATIENT
  Age: 14 Year
  Sex: Male

DRUGS (5)
  1. ATROPINE SULFATE, DIPHENOXYLATE HCL [Suspect]
     Dosage: UNK
     Route: 048
  2. PREDNISOLONE [Suspect]
     Dosage: UNK
     Route: 048
  3. ACETAMINOPHEN [Suspect]
     Dosage: UNK
     Route: 048
  4. FLUOXETINE [Suspect]
     Dosage: UNK
     Route: 048
  5. HYDROCHLOROTHIAZIDE AND OLMESARTAN [Suspect]
     Dosage: UNK
     Route: 048

REACTIONS (2)
  - COMPLETED SUICIDE [None]
  - INTENTIONAL SELF-INJURY [None]
